FAERS Safety Report 6731168-X (Version None)
Quarter: 2010Q2

REPORT INFORMATION
  Report Type: 
  Country: None (occurrence: None)
  Receive Date: 20100518
  Receipt Date: 20100511
  Transmission Date: 20101027
  Serious: Yes (Other)
  Sender: FDA-Public Use
  Company Number: PHHO2010AU04345

PATIENT
  Sex: Female

DRUGS (2)
  1. EXELON [Suspect]
     Indication: DEMENTIA ALZHEIMER'S TYPE
     Dosage: UNK
     Dates: start: 20090205
  2. ZOLOFT [Concomitant]

REACTIONS (4)
  - ABNORMAL DREAMS [None]
  - HALLUCINATION [None]
  - LOWER RESPIRATORY TRACT INFECTION [None]
  - NIGHTMARE [None]
